FAERS Safety Report 5771860-7 (Version None)
Quarter: 2008Q2

REPORT INFORMATION
  Report Type: 
  Country: None (occurrence: None)
  Receive Date: 20080613
  Receipt Date: 20080612
  Transmission Date: 20081010
  Serious: Yes (Hospitalization)
  Sender: FDA-Public Use
  Company Number: B0517367A

PATIENT
  Age: 67 Year
  Sex: Female

DRUGS (5)
  1. SAWACILLIN [Suspect]
     Dosage: 1500MG PER DAY
     Route: 048
     Dates: start: 20080406, end: 20080406
  2. OMEPRAL [Suspect]
     Route: 048
     Dates: start: 20080406, end: 20080406
  3. CLARITHROMYCIN [Suspect]
     Route: 048
     Dates: start: 20080406, end: 20080406
  4. ACINON [Concomitant]
     Indication: CONSTIPATION
     Route: 048
     Dates: start: 20080201, end: 20080406
  5. MUCOSTA [Concomitant]
     Indication: GASTRITIS
     Route: 048
     Dates: start: 20080201, end: 20080406

REACTIONS (3)
  - DRUG ERUPTION [None]
  - ERYTHEMA [None]
  - PYREXIA [None]
